FAERS Safety Report 24245140 (Version 1)
Quarter: 2024Q3

REPORT INFORMATION
  Report Type: Report from Study
  Country: US (occurrence: US)
  Receive Date: 20240823
  Receipt Date: 20240823
  Transmission Date: 20241017
  Serious: No
  Sender: ALEXION PHARMACEUTICALS
  Company Number: US-ALXN-A202212650

PATIENT
  Sex: Female

DRUGS (1)
  1. STRENSIQ [Suspect]
     Active Substance: ASFOTASE ALFA
     Indication: Hypophosphatasia
     Dosage: UNK
     Route: 065

REACTIONS (10)
  - Lymphadenopathy [Unknown]
  - Bone pain [Unknown]
  - Syringe issue [Not Recovered/Not Resolved]
  - Gastrointestinal disorder [Unknown]
  - Weight fluctuation [Unknown]
  - Fracture [Unknown]
  - Back pain [Unknown]
  - Fatigue [Unknown]
  - Injection site discomfort [Unknown]
  - Injection site pain [Unknown]
